FAERS Safety Report 6162952-1 (Version None)
Quarter: 2009Q2

REPORT INFORMATION
  Report Type: 
  Country: None (occurrence: None)
  Receive Date: 20090421
  Receipt Date: 20090415
  Transmission Date: 20091009
  Serious: Yes (Hospitalization)
  Sender: FDA-Public Use
  Company Number: IT-GILEAD-2009-0020767

PATIENT
  Sex: Male

DRUGS (4)
  1. ATRIPLA [Suspect]
     Indication: HIV INFECTION
     Route: 048
     Dates: start: 20090206
  2. VIREAD [Concomitant]
     Indication: HIV INFECTION
  3. EPIVIR [Concomitant]
     Indication: HIV INFECTION
  4. SUSTIVA [Concomitant]
     Indication: HIV INFECTION

REACTIONS (1)
  - TRIGEMINAL NEURALGIA [None]
